FAERS Safety Report 14372383 (Version 2)
Quarter: 2018Q1

REPORT INFORMATION
  Report Type: Spontaneous
  Country: US (occurrence: US)
  Receive Date: 20180110
  Receipt Date: 20180226
  Transmission Date: 20180509
  Serious: Yes (Death, Hospitalization)
  Sender: FDA-Public Use
  Company Number: US-SA-2017SA207493

PATIENT
  Age: 58 Year
  Sex: Male

DRUGS (6)
  1. AMPYRA [Suspect]
     Active Substance: DALFAMPRIDINE
     Route: 048
     Dates: start: 20161014
  2. BIOTIN [Concomitant]
     Active Substance: BIOTIN
  3. AUBAGIO [Suspect]
     Active Substance: TERIFLUNOMIDE
     Indication: MULTIPLE SCLEROSIS
     Route: 048
     Dates: start: 20161025, end: 201707
  4. VITAMIN D [Concomitant]
     Active Substance: CHOLECALCIFEROL
  5. COPAXONE [Suspect]
     Active Substance: GLATIRAMER ACETATE
     Route: 065
  6. GILENYA [Suspect]
     Active Substance: FINGOLIMOD HYDROCHLORIDE
     Route: 065

REACTIONS (14)
  - Aspiration [Fatal]
  - Death [Fatal]
  - Speech disorder [Unknown]
  - Pneumonia [Unknown]
  - Pneumonia aspiration [Unknown]
  - Memory impairment [Unknown]
  - Ataxia [Unknown]
  - Depression [Unknown]
  - Loss of personal independence in daily activities [Unknown]
  - Weight decreased [Unknown]
  - Primary progressive multiple sclerosis [Fatal]
  - Dysphagia [Fatal]
  - Frustration tolerance decreased [Unknown]
  - Drug ineffective [Unknown]

NARRATIVE: CASE EVENT DATE: 20171012
